FAERS Safety Report 14787151 (Version 1)
Quarter: 2018Q2

REPORT INFORMATION
  Report Type: Spontaneous
  Country: ES (occurrence: ES)
  Receive Date: 20180421
  Receipt Date: 20180421
  Transmission Date: 20180711
  Serious: Yes (Death)
  Sender: FDA-Public Use
  Company Number: ES-ROCHE-2107979

PATIENT
  Age: 74 Year
  Sex: Female

DRUGS (7)
  1. PROGRAF [Suspect]
     Active Substance: TACROLIMUS\TACROLIMUS ANHYDROUS
     Indication: RENAL TRANSPLANT
     Route: 048
     Dates: start: 19991001
  2. CELLCEPT [Suspect]
     Active Substance: MYCOPHENOLATE MOFETIL\MYCOPHENOLATE MOFETIL HYDROCHLORIDE
     Indication: RENAL TRANSPLANT
     Dosage: ON 05/NOV/2015, DOSE WAS REDUCED
     Route: 048
     Dates: start: 19991001
  3. OMEPRAZOL [Concomitant]
     Active Substance: OMEPRAZOLE
     Dosage: 1-0-0
     Route: 048
     Dates: start: 19991001
  4. LOVASTATINA [Concomitant]
     Active Substance: LOVASTATIN
     Dosage: 0-0-1
     Route: 048
     Dates: start: 19991001
  5. ADALAT [Concomitant]
     Active Substance: NIFEDIPINE
     Dosage: 1-0-0
     Route: 048
     Dates: start: 19991001
  6. ENALAPRIL [Concomitant]
     Active Substance: ENALAPRIL
     Dosage: 1-0-0
     Route: 048
     Dates: start: 19991001
  7. PREDNISONA ALONGA [Concomitant]
     Dosage: 1 CP DIA
     Route: 048

REACTIONS (1)
  - Malignant melanoma [Fatal]

NARRATIVE: CASE EVENT DATE: 20151106
